FAERS Safety Report 9240266 (Version 1)
Quarter: 2013Q1

REPORT INFORMATION
  Report Type: Spontaneous
  Country: US (occurrence: None)
  Receive Date: 20121109
  Receipt Date: 20121109
  Transmission Date: 20140127
  Serious: Yes (Other)
  Sender: FDA-Public Use
  Company Number: 1000037235

PATIENT
  Age: 70 Year
  Sex: Female

DRUGS (4)
  1. TIAZAC [Suspect]
     Dosage: 180 MG (180 MG, 1 IN 1 D), ORAL
     Route: 048
     Dates: start: 2007
  2. AMOXICILLIN (AMOXICILLIN) [Suspect]
     Dosage: 875 MG (875 MG)
     Dates: start: 20120714, end: 20120714
  3. SECTRAL (ACEBUTOLOL HYDROCHLORIDE) (ACEBUTOLOL) [Concomitant]
  4. KLONOPIN [Concomitant]

REACTIONS (3)
  - Heart rate increased [None]
  - Blood pressure increased [None]
  - Palpitations [None]
